FAERS Safety Report 23560101 (Version 1)
Quarter: 2024Q1

REPORT INFORMATION
  Report Type: Spontaneous
  Country: US (occurrence: None)
  Receive Date: 20240223
  Receipt Date: 20240223
  Transmission Date: 20240410
  Serious: Yes (Hospitalization)
  Sender: FDA-Public Use
  Company Number: None

PATIENT
  Sex: Female

DRUGS (2)
  1. MYCOPHENOLIC ACID [Suspect]
     Active Substance: MYCOPHENOLIC ACID
     Indication: Renal transplant
     Dosage: 360MG TWICE DAILY BY MOUTH
     Route: 048
     Dates: start: 202102
  2. ENVARSUS XR [Concomitant]
     Active Substance: TACROLIMUS

REACTIONS (3)
  - Bronchitis [None]
  - Cough [None]
  - Wheezing [None]
